FAERS Safety Report 6344701-7 (Version None)
Quarter: 2009Q3

REPORT INFORMATION
  Report Type: 
  Country: None (occurrence: None)
  Receive Date: 20090821
  Receipt Date: 20090522
  Transmission Date: 20100115
  Serious: No
  Sender: FDA-Public Use
  Company Number: 8046756

PATIENT
  Age: 67 Year
  Sex: Female
  Weight: 63.1 kg

DRUGS (9)
  1. CIMZIA [Suspect]
     Indication: CROHN'S DISEASE
     Dosage: 400 MG SC
     Route: 058
     Dates: start: 20090511
  2. ESTRADIOL [Concomitant]
  3. ZOLOFT [Concomitant]
  4. FOSAMAX [Concomitant]
  5. LOMOTIL [Concomitant]
  6. SPIRIVA [Concomitant]
  7. OMEPRAZOLE [Concomitant]
  8. PHENERGAN [Concomitant]
  9. ACYCLOVIR [Concomitant]

REACTIONS (1)
  - RASH [None]
